FAERS Safety Report 15352605 (Version 1)
Quarter: 2018Q3

REPORT INFORMATION
  Report Type: Spontaneous
  Country: JP (occurrence: JP)
  Receive Date: 20180905
  Receipt Date: 20180905
  Transmission Date: 20181010
  Serious: Yes (Hospitalization)
  Sender: FDA-Public Use
  Company Number: JP-SAKK-2018SA240998AA

PATIENT
  Age: 63 Year
  Sex: Female

DRUGS (4)
  1. CARBOPLATIN. [Suspect]
     Active Substance: CARBOPLATIN
     Dosage: UNK UNK, QCY
  2. TAXOTERE [Suspect]
     Active Substance: DOCETAXEL
     Indication: ENDOMETRIAL ADENOCARCINOMA
     Dosage: UNK UNK, QCY
  3. CARBOPLATIN. [Suspect]
     Active Substance: CARBOPLATIN
     Indication: ENDOMETRIAL ADENOCARCINOMA
     Dosage: UNK UNK, QCY
  4. TAXOTERE [Suspect]
     Active Substance: DOCETAXEL
     Dosage: UNK UNK, QCY

REACTIONS (5)
  - Muscular weakness [Unknown]
  - Pain [Recovering/Resolving]
  - Oedema [Unknown]
  - Walking disability [Unknown]
  - Burning sensation [Unknown]
